FAERS Safety Report 24162802 (Version 2)
Quarter: 2024Q3

REPORT INFORMATION
  Report Type: Spontaneous
  Country: US (occurrence: US)
  Receive Date: 20240801
  Receipt Date: 20240828
  Transmission Date: 20241017
  Serious: No
  Sender: PFIZER
  Company Number: US-PFIZER INC-PV202400099650

PATIENT
  Age: 69 Year
  Sex: Female

DRUGS (1)
  1. IBRANCE [Suspect]
     Active Substance: PALBOCICLIB
     Dosage: UNK
     Route: 048

REACTIONS (12)
  - Headache [Unknown]
  - Pain in extremity [Unknown]
  - Constipation [Unknown]
  - Peripheral swelling [Unknown]
  - Gait disturbance [Unknown]
  - Hyperaesthesia [Unknown]
  - Limb injury [Unknown]
  - Grip strength decreased [Unknown]
  - Epistaxis [Unknown]
  - Glossodynia [Recovering/Resolving]
  - Oral candidiasis [Recovered/Resolved]
  - Fatigue [Unknown]
